FAERS Safety Report 24098337 (Version 1)
Quarter: 2024Q3

REPORT INFORMATION
  Report Type: Spontaneous
  Country: US (occurrence: US)
  Receive Date: 20240716
  Receipt Date: 20240716
  Transmission Date: 20241017
  Serious: No
  Sender: BRISTOL MYERS SQUIBB
  Company Number: US-BRISTOL-MYERS SQUIBB COMPANY-2024-112694

PATIENT
  Age: 68 Year
  Sex: Female
  Weight: 68.49 kg

DRUGS (1)
  1. POMALYST [Suspect]
     Active Substance: POMALIDOMIDE
     Indication: Plasma cell myeloma
     Dosage: 4MG CAPSULE DAILY FOR 21 DAYS THEN 7 DAYS OFF
     Route: 048

REACTIONS (2)
  - Asthenia [Recovering/Resolving]
  - Fatigue [Recovering/Resolving]
